FAERS Safety Report 20537399 (Version 1)
Quarter: 2022Q1

REPORT INFORMATION
  Report Type: Spontaneous
  Country: AU (occurrence: AU)
  Receive Date: 20220302
  Receipt Date: 20220302
  Transmission Date: 20220424
  Serious: Yes (Hospitalization)
  Sender: FDA-Public Use
  Company Number: AU-BoehringerIngelheim-2022-BI-156645

PATIENT
  Age: 67 Year
  Sex: Female

DRUGS (3)
  1. JARDIANCE [Suspect]
     Active Substance: EMPAGLIFLOZIN
     Indication: Type 2 diabetes mellitus
  2. JARDIANCE [Suspect]
     Active Substance: EMPAGLIFLOZIN
  3. JARDIANCE [Suspect]
     Active Substance: EMPAGLIFLOZIN

REACTIONS (2)
  - Dehydration [Recovered/Resolved]
  - Vomiting [Recovered/Resolved]
